FAERS Safety Report 5190493-7 (Version None)
Quarter: 2006Q4

REPORT INFORMATION
  Report Type: 
  Country: None (occurrence: None)
  Receive Date: 20061222
  Receipt Date: 20060724
  Transmission Date: 20070319
  Serious: Yes (Other)
  Sender: FDA-Public Use
  Company Number: SI-GLAXOSMITHKLINE-B0432264A

PATIENT
  Age: 37 Year
  Sex: Female
  Weight: 58 kg

DRUGS (4)
  1. ABACAVIR [Suspect]
     Indication: HIV INFECTION
     Dosage: 1TAB PER DAY
     Route: 048
     Dates: start: 20060614, end: 20060723
  2. STOCRIN [Concomitant]
     Indication: HIV INFECTION
     Dates: start: 20040713
  3. VIDEX EC [Concomitant]
     Dates: start: 20040713, end: 20060613
  4. EPIVIR [Concomitant]
     Dates: start: 20040713, end: 20060613

REACTIONS (14)
  - ABDOMINAL PAIN [None]
  - CAMPYLOBACTER INFECTION [None]
  - ENTEROCOCCAL INFECTION [None]
  - FATIGUE [None]
  - FLATULENCE [None]
  - LYMPHOCYTE PERCENTAGE DECREASED [None]
  - MALAISE [None]
  - MYALGIA [None]
  - NAUSEA [None]
  - NEUTROPHIL PERCENTAGE INCREASED [None]
  - PRURITUS [None]
  - PYREXIA [None]
  - RASH GENERALISED [None]
  - RASH MACULO-PAPULAR [None]
